FAERS Safety Report 23109624 (Version 1)
Quarter: 2023Q4

REPORT INFORMATION
  Report Type: Report from Study
  Country: US (occurrence: US)
  Receive Date: 20231026
  Receipt Date: 20231026
  Transmission Date: 20240109
  Serious: Yes (Hospitalization)
  Sender: FDA-Public Use
  Company Number: US-GILEAD-2023-0648701

PATIENT
  Age: 9 Year
  Sex: Male

DRUGS (1)
  1. AZTREONAM LYSINE [Suspect]
     Active Substance: AZTREONAM LYSINE
     Indication: Cystic fibrosis
     Dosage: USE ONE VIAL VIA NEBULIZER THREE TIMES DAILY USE 28 DAYS ON AND 28 DAYS OFF
     Route: 065
     Dates: start: 20220614

REACTIONS (1)
  - Haemoptysis [Not Recovered/Not Resolved]
